FAERS Safety Report 24458761 (Version 1)
Quarter: 2024Q4

REPORT INFORMATION
  Report Type: Spontaneous
  Country: DE (occurrence: DE)
  Receive Date: 20241018
  Receipt Date: 20241018
  Transmission Date: 20250115
  Serious: No
  Sender: ROCHE
  Company Number: DE-ROCHE-3524428

PATIENT
  Age: 26 Year
  Sex: Female

DRUGS (1)
  1. RITUXIMAB [Suspect]
     Active Substance: RITUXIMAB
     Indication: COVID-19
     Route: 065

REACTIONS (4)
  - Off label use [Unknown]
  - Autoantibody positive [Unknown]
  - Immunology test abnormal [Unknown]
  - Investigation abnormal [Unknown]
